FAERS Safety Report 16265109 (Version 1)
Quarter: 2019Q2

REPORT INFORMATION
  Report Type: Spontaneous
  Country: US (occurrence: US)
  Receive Date: 20190501
  Receipt Date: 20190501
  Transmission Date: 20190711
  Serious: Yes (Disabling)
  Sender: FDA-Public Use
  Company Number: None

PATIENT
  Age: 70 Year
  Sex: Female
  Weight: 53.1 kg

DRUGS (1)
  1. ZOLPIDEM [Suspect]
     Active Substance: ZOLPIDEM\ZOLPIDEM TARTRATE

REACTIONS (11)
  - Aortic dilatation [None]
  - Weight decreased [None]
  - Paraesthesia [None]
  - Mouth ulceration [None]
  - Ill-defined disorder [None]
  - Abdominal pain lower [None]
  - Cough [None]
  - Skin disorder [None]
  - Malaise [None]
  - Pulse abnormal [None]
  - Bronchiectasis [None]

NARRATIVE: CASE EVENT DATE: 20150601
